FAERS Safety Report 20797646 (Version 1)
Quarter: 2022Q2

REPORT INFORMATION
  Report Type: Spontaneous
  Country: US (occurrence: US)
  Receive Date: 20220506
  Receipt Date: 20220506
  Transmission Date: 20220721
  Serious: No
  Sender: FDA-Public Use
  Company Number: US-GILEAD-2022-0580677

PATIENT
  Age: 47 Year
  Sex: Male

DRUGS (1)
  1. BIKTARVY [Suspect]
     Active Substance: BICTEGRAVIR SODIUM\EMTRICITABINE\TENOFOVIR ALAFENAMIDE FUMARATE
     Indication: HIV infection
     Dosage: 50MG/200MG/25MG
     Route: 048
     Dates: start: 201905

REACTIONS (5)
  - Tonsillar disorder [Unknown]
  - Nasopharyngeal polyp [Unknown]
  - Nausea [Not Recovered/Not Resolved]
  - Unevaluable event [Not Recovered/Not Resolved]
  - Circumstance or information capable of leading to medication error [Not Recovered/Not Resolved]
